FAERS Safety Report 9068648 (Version 4)
Quarter: 2013Q1

REPORT INFORMATION
  Report Type: Spontaneous
  Country: FI (occurrence: FI)
  Receive Date: 20130128
  Receipt Date: 20130314
  Transmission Date: 20140127
  Serious: Yes (Hospitalization, Other)
  Sender: FDA-Public Use
  Company Number: FI-ROCHE-1181323

PATIENT
  Age: 74 Year
  Sex: Female

DRUGS (9)
  1. MABTHERA [Suspect]
     Indication: B-CELL LYMPHOMA
     Dosage: CONCENTRATE FOR SOLUTION FOR INFUSION
     Route: 042
     Dates: start: 201101, end: 201301
  2. BENDAMUSTINE [Concomitant]
     Indication: B-CELL LYMPHOMA
     Dosage: POWDER FOR CONCENTRATE FOR SOLUTION FOR INFUSION
     Route: 042
     Dates: start: 201101, end: 201107
  3. DIFORMIN RETARD [Concomitant]
     Indication: DIABETES MELLITUS
     Route: 048
  4. ORMOX [Concomitant]
     Route: 048
  5. EMCONCOR [Concomitant]
     Route: 048
  6. PLENDIL [Concomitant]
     Route: 048
  7. LIPCUT [Concomitant]
     Route: 048
  8. TRIMOPAN [Concomitant]
     Route: 048
  9. GLUCOSAMINE SULFATE/MENTHOL/METHYL SULFONYL METHANE [Concomitant]
     Route: 048

REACTIONS (4)
  - Progressive multifocal leukoencephalopathy [Not Recovered/Not Resolved]
  - Coordination abnormal [Unknown]
  - Visual field defect [Unknown]
  - Headache [Unknown]
